FAERS Safety Report 5392589-3 (Version None)
Quarter: 2007Q3

REPORT INFORMATION
  Report Type: 
  Country: None (occurrence: None)
  Receive Date: 20070720
  Receipt Date: 20070711
  Transmission Date: 20080115
  Serious: Yes (Other)
  Sender: FDA-Public Use
  Company Number: US-GENENTECH-243591

PATIENT
  Age: 58 Year
  Sex: Male

DRUGS (4)
  1. BEVACIZUMAB [Suspect]
     Indication: NON-SMALL CELL LUNG CANCER
     Dosage: 15 MG/KG, UNK
     Dates: start: 20061213
  2. RADIATION [Concomitant]
     Indication: NON-SMALL CELL LUNG CANCER
     Dosage: 30 GY, UNK
     Dates: start: 20061106
  3. PACLITAXEL [Concomitant]
     Indication: NON-SMALL CELL LUNG CANCER
     Dates: start: 20061122
  4. CARBOPLATIN [Concomitant]
     Indication: NON-SMALL CELL LUNG CANCER
     Dosage: 6 AUC, UNK
     Dates: start: 20061122

REACTIONS (2)
  - DISEASE PROGRESSION [None]
  - RADIATION PNEUMONITIS [None]
